FAERS Safety Report 6215495-0 (Version None)
Quarter: 2009Q2

REPORT INFORMATION
  Report Type: 
  Country: None (occurrence: None)
  Receive Date: 20090603
  Receipt Date: 20090527
  Transmission Date: 20091009
  Serious: Yes (Hospitalization)
  Sender: FDA-Public Use
  Company Number: VAL_00279_2009

PATIENT
  Sex: Male

DRUGS (5)
  1. BUMETANIDE [Suspect]
     Indication: DRUG USE FOR UNKNOWN INDICATION
     Dosage: (1 MG QD ORAL)
     Route: 048
  2. CARVEDILOL [Suspect]
     Indication: DRUG USE FOR UNKNOWN INDICATION
     Dosage: (12.5 MG QD ORAL)
     Route: 048
  3. ISOSORBIDE MONONITRATE [Suspect]
     Indication: DRUG USE FOR UNKNOWN INDICATION
     Dosage: (25 MG QD ORAL)
     Route: 048
  4. DOXAZOSIN MESYLATE [Suspect]
     Indication: DRUG USE FOR UNKNOWN INDICATION
     Dosage: (4 MG QD ORAL)
     Route: 048
  5. INFLUENZA VACCINE INACTIVATED (BLINDED INFLUENZA INACTIVATED VIRUS VAC [Suspect]
     Indication: DRUG USE FOR UNKNOWN INDICATION
     Dosage: (DF INTRAMUSCULAR)
     Route: 030
     Dates: start: 20081016, end: 20081016

REACTIONS (1)
  - PRESYNCOPE [None]
